FAERS Safety Report 6014989-0 (Version None)
Quarter: 2008Q4

REPORT INFORMATION
  Report Type: 
  Country: None (occurrence: None)
  Receive Date: 20081219
  Receipt Date: 20081208
  Transmission Date: 20090506
  Serious: Yes (Other)
  Sender: FDA-Public Use
  Company Number: IE-JNJCH-2008057213

PATIENT
  Age: 18 Month
  Sex: Male

DRUGS (2)
  1. CALPOL INFANT SUSPENSION [Suspect]
     Indication: GASTROINTESTINAL INFECTION
     Dosage: TEXT:UNSPECIFIED
     Route: 048
  2. IBUPROFEN TABLETS [Suspect]
     Indication: DRUG USE FOR UNKNOWN INDICATION
     Dosage: TEXT:UNSPECIFIED
     Route: 065

REACTIONS (5)
  - EYE SWELLING [None]
  - HYPERSENSITIVITY [None]
  - LIP SWELLING [None]
  - RASH MACULAR [None]
  - SWELLING FACE [None]
